FAERS Safety Report 6557471-4 (Version None)
Quarter: 2010Q1

REPORT INFORMATION
  Report Type: 
  Country: None (occurrence: None)
  Receive Date: 20100127
  Receipt Date: 20100127
  Transmission Date: 20100710
  Serious: Yes (Hospitalization)
  Sender: FDA-Public Use
  Company Number: None

PATIENT
  Age: 68 Year
  Sex: Male
  Weight: 68.2 kg

DRUGS (12)
  1. COUMADIN [Suspect]
     Indication: ATRIAL FIBRILLATION
     Dosage: 3 MG A DAY PO, CHRONIC
     Route: 048
  2. GOODY POWDER [Suspect]
     Indication: ARTHRALGIA
     Dosage: ? DAILY PO, RECENT
     Route: 048
  3. M.V.I. [Concomitant]
  4. LASIX [Concomitant]
  5. NASONEX [Concomitant]
  6. METOPROLOL TARTRATE [Concomitant]
  7. NORVASC [Concomitant]
  8. RAMIPRIL [Concomitant]
  9. XANAX [Concomitant]
  10. SPIRONOLACTONE [Concomitant]
  11. PRILOSEC [Concomitant]
  12. DARVOCET-N 100 [Concomitant]

REACTIONS (3)
  - ANAEMIA [None]
  - GASTROINTESTINAL HAEMORRHAGE [None]
  - REFUSAL OF TREATMENT BY PATIENT [None]
